FAERS Safety Report 5706389-5 (Version None)
Quarter: 2008Q2

REPORT INFORMATION
  Report Type: 
  Country: None (occurrence: None)
  Receive Date: 20080415
  Receipt Date: 20080408
  Transmission Date: 20081010
  Serious: Yes (Hospitalization)
  Sender: FDA-Public Use
  Company Number: BE-MERCK-0802BEL00010

PATIENT
  Age: 69 Year
  Sex: Female

DRUGS (6)
  1. INDOCIN SR [Suspect]
     Indication: POLYARTHRITIS
     Route: 048
     Dates: start: 20020101, end: 20060101
  2. INDOCIN SR [Suspect]
     Route: 048
     Dates: start: 20060101, end: 20080101
  3. LEFLUNOMIDE [Concomitant]
     Route: 048
  4. PERINDOPRIL ERBUMINE [Concomitant]
     Route: 048
  5. ACETAMINOPHEN AND CODEINE PHOSPHATE [Concomitant]
     Route: 048
  6. RANITIDINE [Concomitant]
     Route: 048

REACTIONS (2)
  - CAROTID ARTERY OCCLUSION [None]
  - TIC [None]
